FAERS Safety Report 19181548 (Version 1)
Quarter: 2021Q2

REPORT INFORMATION
  Report Type: Spontaneous
  Country: FR (occurrence: FR)
  Receive Date: 20210426
  Receipt Date: 20210426
  Transmission Date: 20210717
  Serious: Yes (Life-Threatening, Hospitalization, Other)
  Sender: FDA-Public Use
  Company Number: FR-VISTAPHARM, INC.-VER202104-001076

PATIENT
  Age: 1 Year
  Sex: Male

DRUGS (4)
  1. DIAZEPAM. [Concomitant]
     Active Substance: DIAZEPAM
     Indication: STATUS EPILEPTICUS
     Dosage: UNKNOWN (THREE DOSES)
  2. PHENYTOIN. [Suspect]
     Active Substance: PHENYTOIN
     Indication: STATUS EPILEPTICUS
     Dosage: 15 MG/KG OVER 30 MINUTES (AT H0)
     Route: 042
  3. PHENYTOIN. [Suspect]
     Active Substance: PHENYTOIN
     Dosage: 5 MG/KG/H
     Route: 042
  4. CLONAZEPAM. [Concomitant]
     Active Substance: CLONAZEPAM
     Indication: STATUS EPILEPTICUS
     Dosage: UNKNOWN (ONE DOSE)
     Route: 042

REACTIONS (7)
  - Seizure [Recovered/Resolved]
  - Cardiogenic shock [Recovered/Resolved]
  - Cerebellar ataxia [Recovered/Resolved]
  - Nystagmus [Recovered/Resolved]
  - Mutism [Recovered/Resolved]
  - Toxicity to various agents [Unknown]
  - Coma [Recovered/Resolved]
